FAERS Safety Report 18872950 (Version 2)
Quarter: 2021Q1

REPORT INFORMATION
  Report Type: Spontaneous
  Country: CH (occurrence: CH)
  Receive Date: 20210210
  Receipt Date: 20210212
  Transmission Date: 20210420
  Serious: Yes (Death, Life-Threatening, Hospitalization, Disabling, Other)
  Sender: FDA-Public Use
  Company Number: CH-009507513-2102CHE001333

PATIENT
  Sex: Male

DRUGS (1)
  1. KEYTRUDA [Suspect]
     Active Substance: PEMBROLIZUMAB
     Dosage: 2 DOSES IN TOTAL
     Dates: start: 20201203, end: 20201223

REACTIONS (4)
  - Hepatitis [Fatal]
  - Myositis [Fatal]
  - Myasthenia gravis [Fatal]
  - Myocarditis [Fatal]

NARRATIVE: CASE EVENT DATE: 20201227
